FAERS Safety Report 8462574-3 (Version None)
Quarter: 2012Q2

REPORT INFORMATION
  Report Type: 
  Country: None (occurrence: None)
  Receive Date: 20120619
  Receipt Date: 20120619
  Transmission Date: 20120825
  Serious: No
  Sender: FDA-Public Use
  Company Number: None

PATIENT
  Sex: Male
  Weight: 111.8 kg

DRUGS (1)
  1. CREST PROHEALTH RINSE [Suspect]
     Indication: DENTAL DISORDER PROPHYLAXIS
     Dosage: 20ML ONCE ORAL; 20ML ONCE ORAL
     Route: 048
     Dates: start: 20120612

REACTIONS (3)
  - MUMPS [None]
  - PAROTITIS [None]
  - PAROTID GLAND ENLARGEMENT [None]
